FAERS Safety Report 16175914 (Version 1)
Quarter: 2019Q2

REPORT INFORMATION
  Report Type: Spontaneous
  Country: IT (occurrence: IT)
  Receive Date: 20190409
  Receipt Date: 20190409
  Transmission Date: 20190711
  Serious: Yes (Hospitalization)
  Sender: FDA-Public Use
  Company Number: IT-ELI_LILLY_AND_COMPANY-IT201904003513

PATIENT
  Age: 79 Year
  Sex: Male

DRUGS (4)
  1. FLUOROURACILE [Suspect]
     Active Substance: FLUOROURACIL
     Indication: COLON CANCER
     Dosage: 691 MG, CYCLICAL
     Route: 040
     Dates: start: 20181016
  2. FOLINIC ACID [Concomitant]
     Active Substance: LEUCOVORIN
     Indication: COLON CANCER
     Dosage: 172 MG, CYCLICAL
     Route: 042
     Dates: start: 20181016
  3. ERBITUX [Suspect]
     Active Substance: CETUXIMAB
     Indication: COLON CANCER
     Dosage: 432 MG, WEEKLY (1/W)
     Route: 042
     Dates: start: 20181016
  4. FLUOROURACILE [Suspect]
     Active Substance: FLUOROURACIL
     Dosage: 1036 MG, CYCLICAL
     Route: 041
     Dates: start: 20181016

REACTIONS (3)
  - Headache [Recovered/Resolved]
  - Atrial fibrillation [Recovered/Resolved]
  - Hyperhidrosis [Recovered/Resolved]

NARRATIVE: CASE EVENT DATE: 20190110
